FAERS Safety Report 5018202-2 (Version None)
Quarter: 2006Q2

REPORT INFORMATION
  Report Type: 
  Country: None (occurrence: None)
  Receive Date: 20060530
  Receipt Date: 20060515
  Transmission Date: 20061013
  Serious: Yes (Other)
  Sender: FDA-Public Use
  Company Number: 2005091366

PATIENT
  Age: 71 Year
  Sex: Female

DRUGS (5)
  1. PROVERA [Suspect]
     Indication: HORMONE REPLACEMENT THERAPY
     Dosage: (UNKNOWN), ORAL
     Route: 048
     Dates: start: 19870101, end: 19960101
  2. OGEN [Suspect]
     Indication: HORMONE REPLACEMENT THERAPY
     Dosage: (UNKNOWN), ORAL
     Route: 048
     Dates: start: 19870101, end: 20040101
  3. MEDROXYPROGESTERONE ACETATE [Suspect]
     Indication: HORMONE REPLACEMENT THERAPY
     Dosage: (UNKNOWN), ORAL
     Route: 048
     Dates: start: 19870101, end: 19960101
  4. PREMARIN [Suspect]
     Indication: HORMONE REPLACEMENT THERAPY
     Dosage: UNKNOWN
     Route: 065
     Dates: start: 19870101, end: 19960101
  5. PREMPRO [Suspect]
     Indication: HORMONE REPLACEMENT THERAPY
     Dosage: UNKNOWN
     Route: 065
     Dates: start: 19960101, end: 20040101

REACTIONS (1)
  - BREAST CANCER FEMALE [None]
